FAERS Safety Report 9204907 (Version 1)
Quarter: 2013Q1

REPORT INFORMATION
  Report Type: Spontaneous
  Country: US (occurrence: None)
  Receive Date: 20120709
  Receipt Date: 20120709
  Transmission Date: 20140127
  Serious: No
  Sender: FDA-Public Use
  Company Number: 2012HGS-003461

PATIENT
  Sex: Female

DRUGS (3)
  1. BENLYSTA [Suspect]
     Dates: start: 201203
  2. METHOTREXATE (METHOTREXATE) (METHOTREXATE) [Concomitant]
  3. PLAQUENIL (HYDROCHLOROQUINE PHOSPHATE ) (HYDROCHLOROQUINE PHOSPHATE) [Concomitant]

REACTIONS (2)
  - Dehydration [None]
  - Nausea [None]
